FAERS Safety Report 4405642-5 (Version None)
Quarter: 2004Q3

REPORT INFORMATION
  Report Type: 
  Country: None (occurrence: None)
  Receive Date: 20040723
  Receipt Date: 20031027
  Transmission Date: 20050211
  Serious: No
  Sender: FDA-Public Use
  Company Number: US-GLAXOSMITHKLINE-A0431786A

PATIENT
  Age: 52 Year
  Sex: Male
  Weight: 102.7 kg

DRUGS (5)
  1. AVANDIA [Suspect]
     Indication: ILL-DEFINED DISORDER
     Dosage: 4MG IN THE MORNING
     Route: 048
     Dates: start: 20030915
  2. GLYBURIDE [Concomitant]
     Dosage: 2.5MG VARIABLE DOSE
     Route: 048
     Dates: start: 20000601
  3. GLUCOPHAGE [Concomitant]
     Dosage: 500MG VARIABLE DOSE
     Route: 048
     Dates: start: 20000101
  4. TRICOR [Concomitant]
     Dosage: 160MG IN THE MORNING
     Route: 048
     Dates: start: 20030301
  5. ASPIRIN [Concomitant]
     Dosage: 80MG PER DAY
     Route: 048
     Dates: start: 19970101

REACTIONS (1)
  - INSOMNIA [None]
